FAERS Safety Report 4387794-9 (Version None)
Quarter: 2004Q2

REPORT INFORMATION
  Report Type: 
  Country: None (occurrence: None)
  Receive Date: 20040630
  Receipt Date: 20040126
  Transmission Date: 20050107
  Serious: Yes (Other)
  Sender: FDA-Public Use
  Company Number: FR-GLAXOSMITHKLINE-B0321327A

PATIENT
  Age: 52 Year
  Sex: Female
  Weight: 68 kg

DRUGS (6)
  1. MYLERAN [Suspect]
     Indication: THROMBOCYTOPENIA
     Dosage: 2MG TWICE PER DAY
     Route: 065
     Dates: start: 20030701, end: 20031101
  2. PLAVIX [Concomitant]
     Dosage: 75MG PER DAY
     Route: 048
     Dates: end: 20031101
  3. UNICORDIUM [Concomitant]
     Indication: ANGINA PECTORIS
     Dosage: 100MG PER DAY
     Route: 048
     Dates: start: 20030101
  4. APROVEL [Concomitant]
     Indication: ANGINA PECTORIS
     Dosage: 150MG PER DAY
     Route: 048
     Dates: start: 20030101
  5. HYDREA [Concomitant]
     Route: 065
  6. ANAGRELIDE HCL [Concomitant]
     Route: 065

REACTIONS (1)
  - HAEMOPTYSIS [None]
